FAERS Safety Report 6142669-X (Version None)
Quarter: 2009Q2

REPORT INFORMATION
  Report Type: 
  Country: None (occurrence: None)
  Receive Date: 20090403
  Receipt Date: 20090330
  Transmission Date: 20091009
  Serious: Yes (Hospitalization)
  Sender: FDA-Public Use
  Company Number: JP-BAYER-200910718BYL

PATIENT
  Age: 77 Year
  Sex: Male
  Weight: 49 kg

DRUGS (4)
  1. ASPIRIN [Suspect]
     Indication: THROMBOSIS PROPHYLAXIS
     Dosage: TOTAL DAILY DOSE: 100 MG  UNIT DOSE: 100 MG
     Route: 048
     Dates: start: 20090202, end: 20090227
  2. LIPITOR [Suspect]
     Indication: HYPERLIPIDAEMIA
     Dosage: TOTAL DAILY DOSE: 10 MG  UNIT DOSE: 10 MG
     Route: 048
     Dates: end: 20090227
  3. CARNACULIN [Suspect]
     Indication: RETINAL VEIN OCCLUSION
     Dosage: TOTAL DAILY DOSE: 150 U  UNIT DOSE: 50 U
     Route: 048
     Dates: start: 20090202, end: 20090227
  4. JOLETHIN [Suspect]
     Indication: RETINAL VEIN OCCLUSION
     Dosage: TOTAL DAILY DOSE: 300 ?G  UNIT DOSE: 100 ?G
     Route: 048
     Dates: start: 20090202, end: 20090227

REACTIONS (1)
  - ORGANISING PNEUMONIA [None]
